FAERS Safety Report 8136318-9 (Version None)
Quarter: 2012Q1

REPORT INFORMATION
  Report Type: 
  Country: None (occurrence: None)
  Receive Date: 20120214
  Receipt Date: 20120206
  Transmission Date: 20120608
  Serious: Yes (Other)
  Sender: FDA-Public Use
  Company Number: US-ABBOTT-12P-163-0893568-00

PATIENT
  Sex: Female
  Weight: 113.5 kg

DRUGS (13)
  1. HUMALOG [Concomitant]
     Indication: DIABETES MELLITUS
  2. HUMULIN N [Concomitant]
     Indication: DIABETES MELLITUS
     Dosage: INSULIN
  3. ISUPREL [Concomitant]
     Indication: CARDIOVASCULAR DISORDER
  4. HUMIRA [Suspect]
     Indication: RHEUMATOID ARTHRITIS
  5. METHOTREXATE [Concomitant]
     Indication: RHEUMATOID ARTHRITIS
  6. AVAPRO [Concomitant]
     Indication: HYPERTENSION
  7. ASPIRIN [Concomitant]
     Indication: CARDIAC DISORDER
  8. ASPIRIN [Concomitant]
     Indication: PROPHYLAXIS
  9. PREDNISONE TAB [Concomitant]
     Indication: RHEUMATOID ARTHRITIS
  10. ACTOS [Concomitant]
     Indication: HYPERTENSION
  11. JANUVIA [Concomitant]
     Indication: DIABETES MELLITUS
  12. SIMVASTATIN [Concomitant]
     Indication: BLOOD CHOLESTEROL INCREASED
  13. GLIPIZIDE [Concomitant]
     Indication: DIABETES MELLITUS

REACTIONS (6)
  - CRYSTAL ARTHROPATHY [None]
  - SECRETION DISCHARGE [None]
  - GOUT [None]
  - OEDEMA PERIPHERAL [None]
  - EYE INFECTION FUNGAL [None]
  - SYNOVIAL CYST [None]
